FAERS Safety Report 5145959-2 (Version None)
Quarter: 2006Q4

REPORT INFORMATION
  Report Type: 
  Country: None (occurrence: None)
  Receive Date: 20061106
  Receipt Date: 20061106
  Transmission Date: 20070319
  Serious: Yes (Death)
  Sender: FDA-Public Use
  Company Number: None

PATIENT
  Age: 44 Year
  Sex: Male
  Weight: 136.0791 kg

DRUGS (8)
  1. DANTROLENE SODIUM [Suspect]
     Indication: NEUROLEPTIC MALIGNANT SYNDROME
     Dosage: 116 MG IV Q 6HRS
     Dates: start: 20060713, end: 20060714
  2. NORVASC [Suspect]
     Indication: HYPERTENSION
     Dosage: 5 MG DAILY - YEARS
  3. CLOZAPINE [Suspect]
     Indication: SCHIZOAFFECTIVE DISORDER
     Dosage: 400-}600 MG
     Dates: start: 20060622, end: 20060709
  4. ATENOLOL [Concomitant]
  5. CLONAZEPAM [Concomitant]
  6. GLIPIZIDE [Concomitant]
  7. BROMOCRIPTIN [Concomitant]
  8. INSULIN [Concomitant]

REACTIONS (10)
  - AGITATION [None]
  - BLOOD PRESSURE ABNORMAL [None]
  - BRAIN DAMAGE [None]
  - CARDIAC ARREST [None]
  - DISEASE RECURRENCE [None]
  - JOB DISSATISFACTION [None]
  - LETHARGY [None]
  - NEUROLEPTIC MALIGNANT SYNDROME [None]
  - RESPIRATORY RATE DECREASED [None]
  - SCHIZOAFFECTIVE DISORDER [None]
